FAERS Safety Report 19514782 (Version 1)
Quarter: 2021Q3

REPORT INFORMATION
  Report Type: Spontaneous
  Country: US (occurrence: US)
  Receive Date: 20210709
  Receipt Date: 20210709
  Transmission Date: 20211014
  Serious: Yes (Other)
  Sender: FDA-Public Use
  Company Number: US-CELGENEUS-USA-20210701114

PATIENT
  Sex: Male

DRUGS (3)
  1. THALOMID [Suspect]
     Active Substance: THALIDOMIDE
     Dosage: 400 MILLIGRAM
     Route: 048
     Dates: start: 20210325
  2. THALOMID [Suspect]
     Active Substance: THALIDOMIDE
     Indication: PLASMA CELL MYELOMA
     Dosage: 100 MILLIGRAM
     Route: 048
     Dates: start: 201508
  3. THALOMID [Suspect]
     Active Substance: THALIDOMIDE
     Indication: IDIOPATHIC PULMONARY FIBROSIS
     Dosage: 100 MILLIGRAM
     Route: 048
     Dates: start: 201603

REACTIONS (1)
  - Pneumonia [Unknown]
